FAERS Safety Report 9469996 (Version 1)
Quarter: 2013Q3

REPORT INFORMATION
  Report Type: Spontaneous
  Country: US (occurrence: None)
  Receive Date: 20130820
  Receipt Date: 20130820
  Transmission Date: 20140515
  Serious: No
  Sender: FDA-Public Use
  Company Number: None

PATIENT
  Age: 67 Year
  Sex: Male
  Weight: 109 kg

DRUGS (1)
  1. ALFA 2 INTERFERON 2 B [Suspect]

REACTIONS (3)
  - Orthostatic hypotension [None]
  - Dizziness [None]
  - Fatigue [None]
